FAERS Safety Report 6829487-1 (Version None)
Quarter: 2010Q3

REPORT INFORMATION
  Report Type: 
  Country: None (occurrence: None)
  Receive Date: 20100709
  Receipt Date: 20070317
  Transmission Date: 20110219
  Serious: No
  Sender: FDA-Public Use
  Company Number: US-PFIZER INC-2007003316

PATIENT
  Sex: Male
  Weight: 75.75 kg

DRUGS (1)
  1. CHANTIX [Suspect]
     Indication: SMOKING CESSATION THERAPY
     Dates: start: 20070109, end: 20070109

REACTIONS (3)
  - FEELING ABNORMAL [None]
  - MENTAL IMPAIRMENT [None]
  - SEDATION [None]
